FAERS Safety Report 10062036 (Version 1)
Quarter: 2014Q2

REPORT INFORMATION
  Report Type: Spontaneous
  Country: US (occurrence: None)
  Receive Date: 20140404
  Receipt Date: 20140404
  Transmission Date: 20141212
  Serious: Yes (Hospitalization)
  Sender: FDA-Public Use
  Company Number: None

PATIENT
  Age: 62 Year
  Sex: Male
  Weight: 81.65 kg

DRUGS (1)
  1. TAXOTERE [Suspect]
     Indication: LUNG CANCER METASTATIC
     Dosage: 155 MG EVERY 21 DAYS
     Route: 042
     Dates: start: 20140325, end: 20140325

REACTIONS (1)
  - Dyspnoea [None]
